FAERS Safety Report 17800391 (Version 1)
Quarter: 2020Q2

REPORT INFORMATION
  Report Type: Other
  Country: ES (occurrence: ES)
  Receive Date: 20200518
  Receipt Date: 20200518
  Transmission Date: 20200714
  Serious: Yes (Life-Threatening, Hospitalization)
  Sender: FDA-Public Use
  Company Number: ES-INCYTE CORPORATION-2020IN004469

PATIENT

DRUGS (2)
  1. RYDAPT [Suspect]
     Active Substance: MIDOSTAURIN
     Indication: SYSTEMIC MASTOCYTOSIS
     Dosage: 100 MG, Q12H
     Route: 048
     Dates: start: 20191118
  2. JAKAVI [Suspect]
     Active Substance: RUXOLITINIB
     Indication: POLYCYTHAEMIA VERA
     Dosage: 5 MG, Q12H
     Route: 048
     Dates: start: 201909, end: 201911

REACTIONS (6)
  - Coagulopathy [Recovering/Resolving]
  - Pyrexia [Recovering/Resolving]
  - Agranulocytosis [Recovering/Resolving]
  - Bacteraemia [Recovering/Resolving]
  - Anaemia [Recovering/Resolving]
  - Thrombocytopenia [Recovering/Resolving]

NARRATIVE: CASE EVENT DATE: 20191212
